FAERS Safety Report 21734934 (Version 19)
Quarter: 2025Q2

REPORT INFORMATION
  Report Type: Spontaneous
  Country: IN (occurrence: IN)
  Receive Date: 20221215
  Receipt Date: 20250612
  Transmission Date: 20250717
  Serious: Yes (Death, Hospitalization, Other)
  Sender: PFIZER
  Company Number: IN-PFIZER INC-PV202200122718

PATIENT
  Age: 66 Year
  Sex: Female

DRUGS (13)
  1. LORLATINIB [Suspect]
     Active Substance: LORLATINIB
     Indication: Lung adenocarcinoma
     Route: 048
     Dates: start: 202101
  2. LORLATINIB [Suspect]
     Active Substance: LORLATINIB
     Dosage: 100 MG, 1X/DAY
     Route: 048
     Dates: start: 20221118
  3. LORLATINIB [Suspect]
     Active Substance: LORLATINIB
     Dosage: ON AN EMPTY STOMACH X 4 MONTHS(WITH PAP)
     Route: 048
     Dates: start: 20230106
  4. LORLATINIB [Suspect]
     Active Substance: LORLATINIB
     Route: 048
     Dates: end: 202506
  5. ROSUVAZ [Concomitant]
     Dosage: 10 MG, 1X/DAY TO CONTINUE
  6. ENOXAPARIN [Concomitant]
     Active Substance: ENOXAPARIN
     Dates: end: 202410
  7. DEXAMETHASONE [Concomitant]
     Active Substance: DEXAMETHASONE
  8. DEXAMETHASONE [Concomitant]
     Active Substance: DEXAMETHASONE
     Dosage: 0.5 MG, 1X/DAY
  9. DEXAMETHASONE [Concomitant]
     Active Substance: DEXAMETHASONE
     Dosage: 0.5 MG, ALTERNATE DAY
  10. RANITIDINE HYDROCHLORIDE [Concomitant]
     Active Substance: RANITIDINE HYDROCHLORIDE
     Dosage: 150 MG, 2X/DAY (BEFORE FOOD)
  11. LEVETIRACETAM [Concomitant]
     Active Substance: LEVETIRACETAM
     Dosage: 500 MG, 2X/DAY
  12. ECOSPIRIN AV 150 [Concomitant]
     Dosage: 75 MG, 1X/DAY (AFTER FOOD)
  13. CALCIMAX PLUS [CALCIUM CARBONATE;COLECALCIFEROL;MAGNESIUM HYDROXIDE;ZI [Concomitant]
     Dosage: 7.5 ML, 2X/DAY TO CONTINUE

REACTIONS (32)
  - Cardiopulmonary failure [Fatal]
  - General physical health deterioration [Recovered/Resolved]
  - Diplopia [Unknown]
  - Ataxia [Unknown]
  - Disorientation [Unknown]
  - Somnolence [Unknown]
  - Cerebrovascular accident [Unknown]
  - Metastases to central nervous system [Unknown]
  - Decubitus ulcer [Unknown]
  - Bacterial test positive [Unknown]
  - Cerebral atrophy [Unknown]
  - Electrocardiogram QT prolonged [Unknown]
  - Carcinoembryonic antigen increased [Unknown]
  - Coma [Unknown]
  - Loss of consciousness [Unknown]
  - Altered state of consciousness [Unknown]
  - Lipids abnormal [Unknown]
  - White matter lesion [Unknown]
  - Body mass index increased [Unknown]
  - Body surface area increased [Unknown]
  - Vertigo [Unknown]
  - Eye disorder [Unknown]
  - Hyporesponsive to stimuli [Unknown]
  - Blood pressure decreased [Unknown]
  - Cholelithiasis [Unknown]
  - Bradycardia [Unknown]
  - Blood pressure increased [Unknown]
  - Motor dysfunction [Unknown]
  - Gait disturbance [Unknown]
  - Performance status decreased [Unknown]
  - Treatment noncompliance [Unknown]
  - Intentional product misuse [Unknown]

NARRATIVE: CASE EVENT DATE: 20220101
